FAERS Safety Report 13176132 (Version 1)
Quarter: 2017Q1

REPORT INFORMATION
  Report Type: Spontaneous
  Country: US (occurrence: US)
  Receive Date: 20170201
  Receipt Date: 20170201
  Transmission Date: 20170428
  Serious: No
  Sender: FDA-Public Use
  Company Number: US-PERRIGO-16US022048

PATIENT
  Age: 80 Year
  Sex: Female
  Weight: 68.93 kg

DRUGS (7)
  1. IBUPROFEN. [Suspect]
     Active Substance: IBUPROFEN
     Dosage: 400 MG EVERY MORNING, 800 MG NIGHTLY
     Route: 048
     Dates: start: 20161115
  2. CITALOPRAM [Concomitant]
     Active Substance: CITALOPRAM HYDROBROMIDE
     Indication: ANXIETY
     Dosage: UNK
     Route: 065
  3. IBUPROFEN. [Suspect]
     Active Substance: IBUPROFEN
     Indication: ARTHRALGIA
     Dosage: 600 MG EVERY MORNING, 800 MG NIGHTLY
     Route: 048
     Dates: start: 20161111, end: 20161114
  4. GABAPENTIN. [Concomitant]
     Active Substance: GABAPENTIN
     Indication: POLIOMYELITIS
     Dosage: UNK
     Route: 065
  5. FUROSEMIDE W/POTASSIUM [Concomitant]
     Indication: FLUID RETENTION
     Dosage: UNK
     Route: 065
  6. CENTRUM SILVER                     /02363801/ [Concomitant]
     Active Substance: MINERALS\VITAMINS
     Indication: SUPPLEMENTATION THERAPY
     Dosage: UNK
     Route: 065
  7. SIMVASTATIN. [Concomitant]
     Active Substance: SIMVASTATIN
     Indication: BLOOD CHOLESTEROL INCREASED
     Dosage: UNK
     Route: 065

REACTIONS (1)
  - Incorrect dose administered [Unknown]

NARRATIVE: CASE EVENT DATE: 20161111
